FAERS Safety Report 16370995 (Version 1)
Quarter: 2019Q2

REPORT INFORMATION
  Report Type: Spontaneous
  Country: US (occurrence: US)
  Receive Date: 20190530
  Receipt Date: 20190530
  Transmission Date: 20190711
  Serious: No
  Sender: FDA-Public Use
  Company Number: US-009507513-1905USA007777

PATIENT
  Age: 34 Year
  Sex: Female
  Weight: 79.37 kg

DRUGS (2)
  1. NUVARING [Suspect]
     Active Substance: ETHINYL ESTRADIOL\ETONOGESTREL
     Dosage: 1 RING PER CYCLE
     Route: 067
     Dates: start: 20190430, end: 20190515
  2. NUVARING [Suspect]
     Active Substance: ETHINYL ESTRADIOL\ETONOGESTREL
     Indication: CONTRACEPTION
     Dosage: 1 RING PER CYCLE
     Route: 067
     Dates: start: 2014

REACTIONS (4)
  - Device expulsion [Unknown]
  - Vaginal haemorrhage [Unknown]
  - Product quality issue [Unknown]
  - Poor quality device used [Unknown]

NARRATIVE: CASE EVENT DATE: 20190515
